FAERS Safety Report 14625252 (Version 2)
Quarter: 2018Q1

REPORT INFORMATION
  Report Type: Spontaneous
  Country: US (occurrence: US)
  Receive Date: 20180312
  Receipt Date: 20180315
  Transmission Date: 20180509
  Serious: No
  Sender: FDA-Public Use
  Company Number: US-AMGEN-USASP2018032608

PATIENT
  Sex: Female
  Weight: 67.12 kg

DRUGS (5)
  1. XELJANZ [Suspect]
     Active Substance: TOFACITINIB CITRATE
     Indication: PAIN
  2. ENBREL [Suspect]
     Active Substance: ETANERCEPT
     Indication: PRODUCT USED FOR UNKNOWN INDICATION
     Dosage: UNK
     Route: 065
     Dates: end: 2016
  3. XELJANZ [Suspect]
     Active Substance: TOFACITINIB CITRATE
     Indication: SWELLING
     Dosage: 5 MG, UNK (TWO PILLS)
     Route: 065
     Dates: start: 2016
  4. XELJANZ [Suspect]
     Active Substance: TOFACITINIB CITRATE
     Indication: RHEUMATOID ARTHRITIS
  5. HUMIRA [Suspect]
     Active Substance: ADALIMUMAB
     Indication: PRODUCT USED FOR UNKNOWN INDICATION
     Dosage: UNK
     Route: 065
     Dates: end: 2016

REACTIONS (6)
  - Malaise [Not Recovered/Not Resolved]
  - Drug hypersensitivity [Unknown]
  - Swelling [Unknown]
  - Hypertension [Recovered/Resolved]
  - Inflammation [Unknown]
  - Pain [Unknown]

NARRATIVE: CASE EVENT DATE: 2018
